FAERS Safety Report 5483671-0 (Version None)
Quarter: 2007Q4

REPORT INFORMATION
  Report Type: 
  Country: None (occurrence: None)
  Receive Date: 20071012
  Receipt Date: 20071004
  Transmission Date: 20080405
  Serious: Yes (Other)
  Sender: FDA-Public Use
  Company Number: US-ELI_LILLY_AND_COMPANY-US200710001246

PATIENT
  Sex: Female

DRUGS (3)
  1. HUMULIN R [Suspect]
     Dosage: UNK, UNK
  2. HUMULIN R [Suspect]
     Dates: start: 20070701
  3. LEVOTHYROXINE SODIUM [Concomitant]

REACTIONS (5)
  - APHONIA [None]
  - DYSPNOEA [None]
  - NERVE INJURY [None]
  - THYROIDECTOMY [None]
  - VOCAL CORD PARALYSIS [None]
